FAERS Safety Report 11222416 (Version 2)
Quarter: 2015Q3

REPORT INFORMATION
  Report Type: Spontaneous
  Country: BR (occurrence: BR)
  Receive Date: 20150626
  Receipt Date: 20150826
  Transmission Date: 20151125
  Serious: Yes (Other)
  Sender: FDA-Public Use
  Company Number: BR-ASTRAZENECA-2015SE62221

PATIENT
  Age: 67 Year
  Sex: Female
  Weight: 73 kg

DRUGS (14)
  1. ROSUVASTATIN [Suspect]
     Active Substance: ROSUVASTATIN
     Indication: BLOOD CHOLESTEROL ABNORMAL
     Route: 048
     Dates: start: 2009
  2. VASOGARD [Concomitant]
     Active Substance: CILOSTAZOL
     Indication: POOR PERIPHERAL CIRCULATION
     Route: 048
  3. THIOCTACID [Concomitant]
     Active Substance: .ALPHA.-LIPOIC ACID
     Indication: POOR PERIPHERAL CIRCULATION
     Route: 042
  4. METOPROLOL [Suspect]
     Active Substance: METOPROLOL
     Indication: GASTRIC DISORDER
     Route: 048
     Dates: start: 2010
  5. METFORMIN [Suspect]
     Active Substance: METFORMIN HYDROCHLORIDE
     Indication: DIABETES MELLITUS
     Dosage: NON-ASTRAZENECA PRODUCT
     Route: 048
     Dates: start: 2011, end: 20150609
  6. DAONIL [Concomitant]
     Active Substance: GLYBURIDE
     Indication: DIABETES MELLITUS
     Dates: start: 2011, end: 2011
  7. ZENAFRON [Concomitant]
     Indication: POOR PERIPHERAL CIRCULATION
     Route: 048
  8. OMEPRAZOLE. [Suspect]
     Active Substance: OMEPRAZOLE
     Indication: GASTRIC DISORDER
     Route: 048
  9. AMYTRIL [Concomitant]
     Active Substance: AMITRIPTYLINE HYDROCHLORIDE
     Indication: DIABETIC NEUROPATHY
     Route: 048
  10. LOSARTAN. [Suspect]
     Active Substance: LOSARTAN
     Indication: GASTRIC DISORDER
     Route: 048
     Dates: start: 2010
  11. CLOPIDOGREL [Concomitant]
     Active Substance: CLOPIDOGREL BISULFATE
     Indication: POOR PERIPHERAL CIRCULATION
  12. AMLODIPINE [Suspect]
     Active Substance: AMLODIPINE BESYLATE
     Indication: GASTRIC DISORDER
     Route: 048
     Dates: start: 2010
  13. CHLORTHALIDONE. [Suspect]
     Active Substance: CHLORTHALIDONE
     Indication: GASTRIC DISORDER
     Route: 048
     Dates: start: 2010
  14. NPH INSULIN [Concomitant]
     Active Substance: INSULIN BEEF
     Indication: DIABETES MELLITUS
     Dates: start: 2011

REACTIONS (5)
  - Diabetes mellitus [Recovered/Resolved]
  - Blood cholesterol increased [Recovered/Resolved]
  - Blister [Not Recovered/Not Resolved]
  - Hyperglycaemia [Recovering/Resolving]
  - Renal disorder [Not Recovered/Not Resolved]

NARRATIVE: CASE EVENT DATE: 2009
